FAERS Safety Report 5764260-7 (Version None)
Quarter: 2008Q2

REPORT INFORMATION
  Report Type: 
  Country: None (occurrence: None)
  Receive Date: 20080610
  Receipt Date: 20080530
  Transmission Date: 20081010
  Serious: Yes (Other)
  Sender: FDA-Public Use
  Company Number: FI-GENENTECH-247371

PATIENT
  Age: 34 Year
  Sex: Female

DRUGS (6)
  1. HERCEPTIN [Suspect]
     Indication: BREAST CANCER
     Dosage: UNK, 1/WEEK
     Route: 042
     Dates: start: 20060309, end: 20060504
  2. TAXOTERE [Suspect]
     Indication: BREAST CANCER
     Dosage: UNK, Q3W
     Route: 042
     Dates: start: 20060301, end: 20060501
  3. CYCLOPHOSPHAMIDE [Concomitant]
     Indication: BREAST CANCER
  4. EPIRUBICIN [Concomitant]
     Indication: BREAST CANCER
  5. FLUOROURACIL [Concomitant]
     Indication: BREAST CANCER
  6. ZOLADEX [Concomitant]
     Indication: DRUG USE FOR UNKNOWN INDICATION
     Dates: start: 20060101

REACTIONS (6)
  - ANGINA PECTORIS [None]
  - DYSPNOEA EXERTIONAL [None]
  - EXERCISE TOLERANCE DECREASED [None]
  - FATIGUE [None]
  - MYALGIA [None]
  - TACHYCARDIA [None]
